FAERS Safety Report 7769547-4 (Version None)
Quarter: 2011Q3

REPORT INFORMATION
  Report Type: 
  Country: None (occurrence: None)
  Receive Date: 20110922
  Receipt Date: 20110512
  Transmission Date: 20111222
  Serious: No
  Sender: FDA-Public Use
  Company Number: US-ASTRAZENECA-2011SE29027

PATIENT
  Sex: Female
  Weight: 90.7 kg

DRUGS (12)
  1. SEROQUEL [Suspect]
     Route: 048
  2. ATIVAN [Concomitant]
  3. SEROQUEL [Suspect]
     Indication: MENTAL DISORDER
     Route: 048
     Dates: start: 20090101, end: 20110101
  4. AMBIEN [Concomitant]
  5. SEROQUEL [Suspect]
     Route: 048
  6. HYDROXYZINE HCL [Concomitant]
     Indication: ANXIETY
  7. LEXAPRO [Concomitant]
  8. SEROQUEL [Suspect]
     Route: 048
  9. SEROQUEL [Suspect]
     Route: 048
  10. ANXIETY MEDICATIONS [Concomitant]
  11. LORASPAM [Concomitant]
  12. SEROQUEL [Suspect]
     Dosage: 600 DAILY
     Route: 048
     Dates: start: 20090101

REACTIONS (8)
  - VISION BLURRED [None]
  - SCHIZOPHRENIA [None]
  - CATARACT [None]
  - HALLUCINATION [None]
  - CARDIAC DISORDER [None]
  - INCORRECT DOSE ADMINISTERED [None]
  - SOMNOLENCE [None]
  - BIPOLAR DISORDER [None]
